FAERS Safety Report 10596442 (Version 1)
Quarter: 2014Q4

REPORT INFORMATION
  Report Type: Spontaneous
  Country: ES (occurrence: ES)
  Receive Date: 20141120
  Receipt Date: 20141120
  Transmission Date: 20150529
  Serious: Yes (Hospitalization)
  Sender: FDA-Public Use
  Company Number: ES-PFIZER INC-2014319636

PATIENT
  Age: 74 Year
  Sex: Female

DRUGS (2)
  1. FENTANYL. [Suspect]
     Active Substance: FENTANYL
     Dosage: 125 ?G, Q72H
     Route: 061
     Dates: start: 20130621, end: 20140225
  2. MORPHINE SULFATE. [Suspect]
     Active Substance: MORPHINE SULFATE
     Dosage: 60 MG, DAILY
     Route: 048
     Dates: start: 20140215, end: 20140225

REACTIONS (2)
  - Hyperaesthesia [Recovering/Resolving]
  - Neurotoxicity [Recovering/Resolving]

NARRATIVE: CASE EVENT DATE: 201402
